FAERS Safety Report 18569967 (Version 2)
Quarter: 2021Q1

REPORT INFORMATION
  Report Type: Spontaneous
  Country: US (occurrence: US)
  Receive Date: 20201202
  Receipt Date: 20210311
  Transmission Date: 20210419
  Serious: No
  Sender: FDA-Public Use
  Company Number: US-DECIPHERA PHARMACEUTICALS LLC-2020-US-000622

PATIENT
  Age: 71 Year
  Sex: Male
  Weight: 92.9 kg

DRUGS (7)
  1. ATORVASTATIN [Concomitant]
     Active Substance: ATORVASTATIN
  2. NORCO [Concomitant]
     Active Substance: ACETAMINOPHEN\HYDROCODONE BITARTRATE
  3. LOSARTAN. [Concomitant]
     Active Substance: LOSARTAN
  4. QINLOCK [Suspect]
     Active Substance: RIPRETINIB
     Indication: METASTASES TO LIVER
     Dosage: 150 MILLIGRAM, QD
     Route: 048
     Dates: start: 20201006
  5. TYLENOL [Concomitant]
     Active Substance: ACETAMINOPHEN
  6. JARDIANCE [Concomitant]
     Active Substance: EMPAGLIFLOZIN
  7. METFORMIN [Concomitant]
     Active Substance: METFORMIN HYDROCHLORIDE

REACTIONS (3)
  - Dysphonia [Unknown]
  - Product use in unapproved indication [Unknown]
  - Abdominal pain [Unknown]
